FAERS Safety Report 14900066 (Version 1)
Quarter: 2018Q2

REPORT INFORMATION
  Report Type: Spontaneous
  Country: US (occurrence: US)
  Receive Date: 20180427
  Receipt Date: 20180427
  Transmission Date: 20180711
  Serious: Yes (Life-Threatening)
  Sender: FDA-Public Use
  Company Number: None

PATIENT
  Age: 40 Year
  Sex: Female

DRUGS (4)
  1. VITAMIN B12 [Concomitant]
     Active Substance: CYANOCOBALAMIN
  2. BIOTIN [Concomitant]
     Active Substance: BIOTIN
  3. ANTI ANXIETY VITAMIN [Concomitant]
  4. MIRENA [Suspect]
     Active Substance: LEVONORGESTREL
     Dates: start: 20130301

REACTIONS (4)
  - Complication of device removal [None]
  - Scar [None]
  - Smear cervix abnormal [None]
  - Uterine cervical lesion excision [None]

NARRATIVE: CASE EVENT DATE: 20130301
